FAERS Safety Report 8430569 (Version 4)
Quarter: 2012Q4

REPORT INFORMATION
  Report Type: Spontaneous
  Country: BR (occurrence: None)
  Receive Date: 20120215
  Receipt Date: 20120824
  Transmission Date: 20130627
  Serious: Yes (Death, Hospitalization)
  Sender: FDA-Public Use
  Company Number: BR-023277

PATIENT
  Age: 70 Year
  Sex: Male
  Weight: 68.2 kg

DRUGS (1)
  1. CHLORAMBUCIL [Suspect]
     Indication: CHRONIC LYMPHOCYTIC LEUKAEMIA
     Dosage: 10MGM2 CYCLIC: DAYS 1-7 EVERY 28 DAYS (10 MG/M2), ORAL
     Route: 048
     Dates: start: 20110330

REACTIONS (3)
  - SEPSIS [None]
  - RENAL IMPAIRMENT [None]
  - GENERAL PHYSICAL HEALTH DETERIORATION [None]
